FAERS Safety Report 18368239 (Version 4)
Quarter: 2020Q4

REPORT INFORMATION
  Report Type: Spontaneous
  Country: PT (occurrence: PT)
  Receive Date: 20201009
  Receipt Date: 20201113
  Transmission Date: 20210114
  Serious: Yes (Other)
  Sender: FDA-Public Use
  Company Number: PT-US-PROVELL PHARMACEUTICALS LLC-E2B_90080745

PATIENT
  Sex: Female
  Weight: 49 kg

DRUGS (1)
  1. EUTIROX [Suspect]
     Active Substance: LEVOTHYROXINE SODIUM
     Indication: THYROIDECTOMY
     Route: 048
     Dates: start: 20200908

REACTIONS (6)
  - Flatulence [Unknown]
  - Nausea [Unknown]
  - Product formulation issue [Unknown]
  - Diarrhoea [Unknown]
  - Dizziness [Unknown]
  - Malaise [Unknown]
